FAERS Safety Report 7040521-9 (Version None)
Quarter: 2010Q4

REPORT INFORMATION
  Report Type: 
  Country: None (occurrence: None)
  Receive Date: 20101008
  Receipt Date: 20101008
  Transmission Date: 20110411
  Serious: Yes (Hospitalization, Disabling, Other)
  Sender: FDA-Public Use
  Company Number: None

PATIENT
  Age: 80 Year
  Sex: Female
  Weight: 58.9676 kg

DRUGS (1)
  1. ALENDRONATE SODIUM [Suspect]
     Indication: ILL-DEFINED DISORDER
     Dosage: 70 MG ONCE WEEKLY

REACTIONS (2)
  - COUGH [None]
  - THROAT TIGHTNESS [None]
